FAERS Safety Report 7729181-9 (Version None)
Quarter: 2011Q3

REPORT INFORMATION
  Report Type: 
  Country: None (occurrence: None)
  Receive Date: 20110906
  Receipt Date: 20110826
  Transmission Date: 20111222
  Serious: Yes (Other)
  Sender: FDA-Public Use
  Company Number: FR-CELGENEUS-056-C5013-11033396

PATIENT
  Sex: Male
  Weight: 90 kg

DRUGS (6)
  1. LENALIDOMIDE [Suspect]
     Indication: PROSTATE CANCER
     Dosage: 25 MILLIGRAM
     Route: 048
     Dates: start: 20100827
  2. LENALIDOMIDE [Suspect]
     Dosage: 25 MILLIGRAM
     Route: 048
     Dates: start: 20110305, end: 20110328
  3. PREDNISONE [Suspect]
     Dosage: 10 MILLIGRAM
     Route: 065
     Dates: start: 20110304, end: 20110328
  4. DOCETAXEL [Suspect]
     Dosage: 152 MILLIGRAM
     Route: 065
     Dates: start: 20110304, end: 20110304
  5. DOCETAXEL [Suspect]
     Indication: PROSTATE CANCER
     Dosage: 150 MILLIGRAM
     Route: 065
     Dates: start: 20100827
  6. PREDNISONE [Suspect]
     Indication: PROSTATE CANCER
     Dosage: 10 MILLIGRAM
     Route: 065
     Dates: start: 20100827

REACTIONS (1)
  - THYROID CANCER [None]
